FAERS Safety Report 12392409 (Version 1)
Quarter: 2016Q2

REPORT INFORMATION
  Report Type: Spontaneous
  Country: BR (occurrence: BR)
  Receive Date: 20160523
  Receipt Date: 20160523
  Transmission Date: 20160815
  Serious: Yes (Other)
  Sender: FDA-Public Use
  Company Number: BR-AMGEN-BRASP2016065092

PATIENT
  Age: 47 Year
  Sex: Female

DRUGS (1)
  1. ENBREL [Suspect]
     Active Substance: ETANERCEPT
     Indication: RHEUMATOID ARTHRITIS
     Dosage: UNK
     Route: 065
     Dates: start: 2015

REACTIONS (7)
  - Cyst [Not Recovered/Not Resolved]
  - Finger deformity [Unknown]
  - Head deformity [Not Recovered/Not Resolved]
  - Fall [Unknown]
  - Activities of daily living impaired [Not Recovered/Not Resolved]
  - Limb deformity [Not Recovered/Not Resolved]
  - Nodule [Not Recovered/Not Resolved]
